FAERS Safety Report 13627621 (Version 1)
Quarter: 2017Q2

REPORT INFORMATION
  Report Type: Spontaneous
  Country: US (occurrence: US)
  Receive Date: 20170531
  Receipt Date: 20170531
  Transmission Date: 20170830
  Serious: Yes (Other)
  Sender: FDA-Public Use
  Company Number: US-ASTELLAS-1539219

PATIENT
  Sex: Male

DRUGS (2)
  1. MIRTAZAPINE. [Concomitant]
     Active Substance: MIRTAZAPINE
  2. TARCEVA [Suspect]
     Active Substance: ERLOTINIB HYDROCHLORIDE
     Indication: LUNG NEOPLASM MALIGNANT
     Route: 048
     Dates: start: 20150207

REACTIONS (7)
  - Stomatitis [Unknown]
  - Dry mouth [Unknown]
  - Stomatitis [Recovered/Resolved]
  - Erythema [Unknown]
  - Scab [Unknown]
  - Rash [Unknown]
  - Dry skin [Unknown]
